FAERS Safety Report 5615065-9 (Version None)
Quarter: 2008Q1

REPORT INFORMATION
  Report Type: 
  Country: None (occurrence: None)
  Receive Date: 20080206
  Receipt Date: 20080129
  Transmission Date: 20080703
  Serious: Yes (Hospitalization)
  Sender: FDA-Public Use
  Company Number: US-ALLERGAN-0801059US

PATIENT
  Sex: Female

DRUGS (8)
  1. BOTOX [Suspect]
     Indication: DYSTONIA
     Dosage: 100 UNITS, SINGLE
     Route: 030
     Dates: start: 20080101, end: 20080101
  2. LIPITOR [Concomitant]
     Indication: DRUG USE FOR UNKNOWN INDICATION
  3. MEURLNTIN [Concomitant]
     Indication: DRUG USE FOR UNKNOWN INDICATION
  4. FOSAMAX [Concomitant]
     Indication: DRUG USE FOR UNKNOWN INDICATION
  5. WELLBUTRIN [Concomitant]
     Indication: DRUG USE FOR UNKNOWN INDICATION
  6. EFFEXOR [Concomitant]
     Indication: DRUG USE FOR UNKNOWN INDICATION
  7. THYROID TAB [Concomitant]
     Indication: DRUG USE FOR UNKNOWN INDICATION
  8. PROMETRIUM [Concomitant]

REACTIONS (2)
  - CONSTIPATION [None]
  - ILEUS PARALYTIC [None]
